FAERS Safety Report 6120910-7 (Version None)
Quarter: 2009Q1

REPORT INFORMATION
  Report Type: 
  Country: None (occurrence: None)
  Receive Date: 20090312
  Receipt Date: 20081027
  Transmission Date: 20090719
  Serious: Yes (Hospitalization)
  Sender: FDA-Public Use
  Company Number: DSA_33306_2009

PATIENT
  Age: 88 Year
  Sex: Male

DRUGS (6)
  1. ENALAPRIL MALEATE [Suspect]
     Indication: HYPERTENSION
     Dosage: 5 MG QD ORAL
     Route: 048
  2. PEPCID [Suspect]
     Indication: GASTRITIS
     Dosage: DF ORAL
     Route: 048
  3. ELAVIL [Suspect]
     Indication: DEPRESSION
     Dosage: 10 MG QD ORAL, (10 MG, QD ORAL)
     Route: 048
     Dates: start: 20040401, end: 20040801
  4. ELAVIL [Suspect]
     Indication: DEPRESSION
     Dosage: 10 MG QD ORAL, (10 MG, QD ORAL)
     Route: 048
     Dates: start: 20080601, end: 20080929
  5. ALLOPURINOL [Suspect]
     Indication: HYPERURICAEMIA
     Dosage: 100 MG QD ORAL
     Route: 048
  6. SELBEX [Concomitant]

REACTIONS (2)
  - RHABDOMYOLYSIS [None]
  - VIRAL INFECTION [None]
